FAERS Safety Report 13431932 (Version 1)
Quarter: 2017Q2

REPORT INFORMATION
  Report Type: Spontaneous
  Country: US (occurrence: US)
  Receive Date: 20170412
  Receipt Date: 20170412
  Transmission Date: 20170830
  Serious: No
  Sender: FDA-Public Use
  Company Number: US-JNJFOC-20170310162

PATIENT
  Sex: Female

DRUGS (2)
  1. XARELTO [Suspect]
     Active Substance: RIVAROXABAN
     Indication: THROMBOSIS
     Route: 048
     Dates: start: 2017, end: 20170307
  2. XARELTO [Suspect]
     Active Substance: RIVAROXABAN
     Indication: THROMBOSIS
     Route: 048
     Dates: start: 20170124, end: 2017

REACTIONS (11)
  - Off label use [Unknown]
  - Drug dose omission [Unknown]
  - Incorrect dose administered [Unknown]
  - Asthenia [Unknown]
  - Drug intolerance [Recovering/Resolving]
  - Feeling abnormal [Unknown]
  - Dehydration [Unknown]
  - Diarrhoea [Unknown]
  - Malaise [Recovering/Resolving]
  - Decreased appetite [Unknown]
  - Nausea [Unknown]

NARRATIVE: CASE EVENT DATE: 2017
